FAERS Safety Report 9395834 (Version 1)
Quarter: 2013Q3

REPORT INFORMATION
  Report Type: Report from Study
  Country: US (occurrence: US)
  Receive Date: 20130711
  Receipt Date: 20130711
  Transmission Date: 20140515
  Serious: Yes (Hospitalization, Other)
  Sender: FDA-Public Use
  Company Number: US-ABBOTT-13P-163-1113914-00

PATIENT
  Age: 46 Year
  Sex: Female

DRUGS (14)
  1. HUMIRA [Suspect]
     Indication: RHEUMATOID ARTHRITIS
     Dates: start: 200801, end: 200804
  2. HUMIRA [Suspect]
     Dates: start: 201303, end: 201306
  3. HUMIRA [Suspect]
     Route: 058
     Dates: start: 201307
  4. ENBREL [Suspect]
     Indication: PRODUCT USED FOR UNKNOWN INDICATION
     Dates: start: 2012
  5. MOTRIN [Concomitant]
     Indication: PAIN
  6. MOTRIN [Concomitant]
     Indication: INFLAMMATION
  7. NEURONTIN [Concomitant]
     Indication: NEURALGIA
  8. PLAQUENIL [Concomitant]
     Indication: RHEUMATOID ARTHRITIS
  9. AMLODIPINE [Concomitant]
     Indication: BLOOD PRESSURE
  10. EVOXAC [Concomitant]
     Indication: SJOGREN^S SYNDROME
  11. POTASSIUM [Concomitant]
     Indication: MINERAL SUPPLEMENTATION
  12. NEXIUM [Concomitant]
     Indication: ABDOMINAL PAIN UPPER
     Dosage: 1-2 A DAY
  13. CYMBALTA [Concomitant]
     Indication: PAIN
  14. OXYCODONE [Concomitant]
     Indication: PAIN
     Dosage: AS NEEDED

REACTIONS (7)
  - Pulmonary oedema [Recovered/Resolved]
  - Pneumonia [Recovered/Resolved]
  - Cholecystectomy [Unknown]
  - Heart rate increased [Unknown]
  - Crohn^s disease [Unknown]
  - Drug effect decreased [Not Recovered/Not Resolved]
  - No therapeutic response [Unknown]
